FAERS Safety Report 12738805 (Version 1)
Quarter: 2016Q3

REPORT INFORMATION
  Report Type: Spontaneous
  Country: US (occurrence: US)
  Receive Date: 20160912
  Receipt Date: 20160912
  Transmission Date: 20161109
  Serious: No
  Sender: FDA-Public Use
  Company Number: US-BAYER-2016-176113

PATIENT
  Sex: Female
  Weight: 57.14 kg

DRUGS (1)
  1. MIRALAX [Suspect]
     Active Substance: POLYETHYLENE GLYCOL 3350
     Indication: GASTRIC DISORDER
     Dosage: 1 TEASPOON DAILY FOR OVER 10 YEARS TO OVER 20 YEARS
     Route: 048

REACTIONS (2)
  - Product use issue [Unknown]
  - Product use issue [None]
